FAERS Safety Report 7391282-5 (Version None)
Quarter: 2011Q2

REPORT INFORMATION
  Report Type: 
  Country: None (occurrence: None)
  Receive Date: 20110404
  Receipt Date: 20110311
  Transmission Date: 20111010
  Serious: No
  Sender: FDA-Public Use
  Company Number: US-PFIZER INC-2010015652

PATIENT
  Sex: Female
  Weight: 68.027 kg

DRUGS (5)
  1. NIFEDIPINE [Concomitant]
     Indication: HYPERTENSION
     Dosage: 30 MG, 1X/DAY
     Route: 048
  2. XALATAN [Suspect]
     Indication: GLAUCOMA
     Dosage: UNK
     Route: 047
  3. THYROID TAB [Concomitant]
     Indication: HYPOPARATHYROIDISM
     Dosage: 1 GRAIN
  4. XALATAN [Suspect]
     Dosage: UNK
  5. VALSARTAN [Concomitant]
     Indication: HYPERTENSION
     Dosage: 80 MG, 1X/DAY
     Route: 048

REACTIONS (1)
  - NO ADVERSE EVENT [None]
